FAERS Safety Report 9227576 (Version 1)
Quarter: 2013Q2

REPORT INFORMATION
  Report Type: Spontaneous
  Country: DE (occurrence: None)
  Receive Date: 20130410
  Receipt Date: 20130410
  Transmission Date: 20140414
  Serious: Yes (Life-Threatening)
  Sender: FDA-Public Use
  Company Number: 1661637

PATIENT
  Age: 70 Year
  Sex: Male

DRUGS (29)
  1. DEXMEDETOMIDINE HYDROCHLORIDE [Suspect]
     Indication: SEDATION
     Dosage: 1.2 MCG/KG/H, UNKNONWN, INTRAVENOUS DRIP
     Route: 041
     Dates: start: 20120625, end: 20120630
  2. (ALLOPURINOL) [Concomitant]
  3. (L-TYHROXIN) [Concomitant]
  4. (VALSARTAN) [Concomitant]
  5. (FENOTEROL HYDROBROMIDE W/IPRATROPIUM BROMIDE) [Concomitant]
  6. (BISOPROLOL FUMARATE) [Concomitant]
  7. (LACTULOSE) [Concomitant]
  8. (MELPREONE HYDROCHLORIDE) [Concomitant]
  9. (VITAMINS NOS) [Concomitant]
  10. (AMBROXOL HYDROCHLORIDE) [Concomitant]
  11. (FUROSEMIDE) [Concomitant]
  12. (HALOPERIDOL) [Concomitant]
  13. (PANTOPRAZOLE) [Concomitant]
  14. (METOCLOPRAMIDE HYDROCHLORIDE) [Concomitant]
  15. (BUTYLSCOPOLAMINIUMBROMID) [Concomitant]
  16. (PHYTOMENDADIONE) [Concomitant]
  17. (ENOXAPARIN SODIUM) [Concomitant]
  18. (PROPOFOL) [Concomitant]
  19. SUFENTANIL CITRATE [Suspect]
  20. (CLONIDINE) [Concomitant]
  21. (POTASSIUM CHLORIDE) [Concomitant]
  22. (NOREPINEPHRINE) [Concomitant]
  23. (INSULIN) [Concomitant]
  24. (ROPIVACAINE) [Concomitant]
  25. (OXYCODONE) [Concomitant]
  26. METAMIZOLE [Concomitant]
  27. (PARACETAMOL) [Concomitant]
  28. (OLICLINOMEL) [Concomitant]
  29. (IMIPENEM CILASTATIN) [Concomitant]

REACTIONS (2)
  - Sinoatrial block [None]
  - Tachycardia [None]
